FAERS Safety Report 9003533 (Version 1)
Quarter: 2013Q1

REPORT INFORMATION
  Report Type: Spontaneous
  Country: DK (occurrence: DK)
  Receive Date: 20130108
  Receipt Date: 20130108
  Transmission Date: 20140127
  Serious: Yes (Other)
  Sender: FDA-Public Use
  Company Number: PHHY2013DK001354

PATIENT
  Age: 1 Year
  Sex: Female
  Weight: 13 kg

DRUGS (1)
  1. VENLAFAXINE [Suspect]
     Dosage: 1 DF MATERNAL DOSE

REACTIONS (2)
  - Enamel anomaly [Not Recovered/Not Resolved]
  - Exposure during breast feeding [Recovered/Resolved]
